FAERS Safety Report 7268781-X (Version None)
Quarter: 2011Q1

REPORT INFORMATION
  Report Type: 
  Country: None (occurrence: None)
  Receive Date: 20110201
  Receipt Date: 20110128
  Transmission Date: 20110831
  Serious: Yes (Death)
  Sender: FDA-Public Use
  Company Number: PHHY2011US07325

PATIENT
  Sex: Male
  Weight: 185 kg

DRUGS (1)
  1. EXJADE [Suspect]
     Dosage: 500 MG, TID
     Route: 048
     Dates: start: 20090901, end: 20101201

REACTIONS (1)
  - DEATH [None]
